FAERS Safety Report 8006446-7 (Version None)
Quarter: 2011Q4

REPORT INFORMATION
  Report Type: 
  Country: None (occurrence: None)
  Receive Date: 20111226
  Receipt Date: 20111221
  Transmission Date: 20120403
  Serious: Yes (Hospitalization)
  Sender: FDA-Public Use
  Company Number: NL-AMGEN-NLDSP2011068311

PATIENT
  Age: 37 Year
  Sex: Female

DRUGS (7)
  1. NEULASTA [Suspect]
     Indication: PROPHYLAXIS
  2. CYCLOPHOSPHAMIDE [Suspect]
     Indication: BREAST CANCER
     Dosage: 880 MG, QD
     Route: 042
     Dates: start: 20101217, end: 20110401
  3. GRANISETRON [Concomitant]
     Indication: PROPHYLAXIS
  4. DOXORUBICIN HCL [Suspect]
     Indication: BREAST CANCER
     Dosage: 85 MG, QD
     Route: 042
     Dates: start: 20101217, end: 20110401
  5. ONDANSETRON [Concomitant]
     Indication: PROPHYLAXIS
  6. DEXAMETHASONE [Concomitant]
     Indication: PROPHYLAXIS
  7. DOCETAXEL [Suspect]
     Indication: BREAST CANCER
     Dosage: 130 MG, QD
     Route: 042
     Dates: start: 20101217, end: 20110401

REACTIONS (1)
  - CELLULITIS STREPTOCOCCAL [None]
